FAERS Safety Report 5988619-8 (Version None)
Quarter: 2008Q4

REPORT INFORMATION
  Report Type: 
  Country: None (occurrence: None)
  Receive Date: 20081208
  Receipt Date: 20081208
  Transmission Date: 20090506
  Serious: Yes (Other)
  Sender: FDA-Public Use
  Company Number: None

PATIENT
  Age: 77 Year
  Sex: Male
  Weight: 56.6996 kg

DRUGS (1)
  1. CARVEDILOL [Suspect]
     Indication: CARDIAC DISORDER
     Dosage: 2 PILLS PER DAY
     Dates: start: 20071120, end: 20071224

REACTIONS (2)
  - DEPRESSED LEVEL OF CONSCIOUSNESS [None]
  - HYPOTENSION [None]
